FAERS Safety Report 7222051-4 (Version None)
Quarter: 2011Q1

REPORT INFORMATION
  Report Type: 
  Country: None (occurrence: None)
  Receive Date: 20110112
  Receipt Date: 20110103
  Transmission Date: 20110831
  Serious: Yes (Hospitalization)
  Sender: FDA-Public Use
  Company Number: PHHO2010FR13677

PATIENT
  Sex: Female
  Weight: 34.8 kg

DRUGS (10)
  1. VP-16 [Suspect]
     Dosage: UNK
     Dates: start: 20091102, end: 20100419
  2. LYRICA [Concomitant]
     Indication: PARAESTHESIA
     Dosage: UNK
     Dates: start: 20100209
  3. KARDEGIC [Concomitant]
     Indication: PROPHYLAXIS
     Dosage: UNK
     Dates: start: 20100209
  4. VITAMIN D [Concomitant]
  5. BACTRIM [Concomitant]
     Indication: PROPHYLAXIS
     Dosage: UNK
     Dates: start: 20091017
  6. ATARAX [Concomitant]
     Indication: ANXIETY
     Dosage: UNK
     Dates: start: 20090415
  7. METHOTREXATE [Suspect]
     Dosage: UNK
     Dates: start: 20091012, end: 20100628
  8. IFOSFAMIDE [Suspect]
     Dosage: UNK
     Dates: start: 20091102, end: 20100531
  9. ZOLEDRONATE [Suspect]
     Indication: BONE SARCOMA
     Dosage: 4 MG, UNK
     Route: 042
     Dates: start: 20091016
  10. CALCIUM [Concomitant]

REACTIONS (3)
  - BACTERIAL INFECTION [None]
  - SCAR EXCISION [None]
  - OSTEITIS [None]
